FAERS Safety Report 6208418-1 (Version None)
Quarter: 2009Q2

REPORT INFORMATION
  Report Type: 
  Country: None (occurrence: None)
  Receive Date: 20090522
  Receipt Date: 20090126
  Transmission Date: 20091009
  Serious: No
  Sender: FDA-Public Use
  Company Number: 8041934

PATIENT
  Age: 50 Year
  Sex: Female
  Weight: 59.1 kg

DRUGS (4)
  1. CIMZIA [Suspect]
     Indication: CROHN'S DISEASE
     Dosage: 400 MG SC
     Route: 058
     Dates: start: 20081114
  2. SYNTHROID [Concomitant]
  3. CLONAZEPAM [Concomitant]
  4. TRAMADOL [Concomitant]

REACTIONS (4)
  - ALOPECIA [None]
  - CONSTIPATION [None]
  - PAIN [None]
  - RECTAL HAEMORRHAGE [None]
